FAERS Safety Report 9700530 (Version 5)
Quarter: 2014Q1

REPORT INFORMATION
  Report Type: Spontaneous
  Country: US (occurrence: US)
  Receive Date: 20131121
  Receipt Date: 20140210
  Transmission Date: 20141002
  Serious: No
  Sender: FDA-Public Use
  Company Number: US-PFIZER INC-2013328180

PATIENT
  Age: 80 Year
  Sex: Female

DRUGS (3)
  1. XALKORI [Suspect]
     Indication: LUNG NEOPLASM MALIGNANT
     Dosage: 250 MG, 2X/DAY
     Route: 048
     Dates: start: 201311
  2. XALKORI [Suspect]
     Dosage: 250 MG, 2X/DAY
     Route: 048
     Dates: start: 20131206
  3. HYDROCHLOROTHIAZIDE/LISINOPRIL [Suspect]
     Dosage: UNK

REACTIONS (12)
  - Cough [Not Recovered/Not Resolved]
  - Constipation [Unknown]
  - Cystitis [Unknown]
  - Urine odour abnormal [Unknown]
  - Urine abnormality [Unknown]
  - Weight decreased [Unknown]
  - Photopsia [Unknown]
  - Oedema peripheral [Unknown]
  - Rash [Unknown]
  - Fatigue [Unknown]
  - Nausea [Unknown]
  - Hypoaesthesia [Unknown]
